FAERS Safety Report 16858433 (Version 1)
Quarter: 2019Q3

REPORT INFORMATION
  Report Type: Spontaneous
  Country: DE (occurrence: DE)
  Receive Date: 20190926
  Receipt Date: 20190926
  Transmission Date: 20191005
  Serious: Yes (Hospitalization)
  Sender: FDA-Public Use
  Company Number: DE-ELI_LILLY_AND_COMPANY-DE201909008349

PATIENT
  Age: 71 Year
  Sex: Female

DRUGS (2)
  1. OLUMIANT [Suspect]
     Active Substance: BARICITINIB
     Indication: PRODUCT USED FOR UNKNOWN INDICATION
     Dosage: 2 MG, UNKNOWN
     Route: 048
     Dates: start: 20190412
  2. OLUMIANT [Suspect]
     Active Substance: BARICITINIB
     Dosage: 4 MG, UNKNOWN
     Route: 048

REACTIONS (7)
  - Palpitations [Unknown]
  - Hypertensive crisis [Recovered/Resolved]
  - Ear discomfort [Unknown]
  - Blood pressure increased [Unknown]
  - Alopecia [Unknown]
  - Sinusitis [Unknown]
  - Drug ineffective [Recovered/Resolved]
